FAERS Safety Report 4805680-4 (Version None)
Quarter: 2005Q4

REPORT INFORMATION
  Report Type: 
  Country: None (occurrence: None)
  Receive Date: 20051021
  Receipt Date: 20050707
  Transmission Date: 20060501
  Serious: Yes (Death, Hospitalization)
  Sender: FDA-Public Use
  Company Number: US-ROCHE-410229

PATIENT
  Age: 46 Year
  Sex: Female
  Weight: 54.4 kg

DRUGS (4)
  1. PEGASYS [Suspect]
     Dosage: FREQUENCY: PER WEEK
     Route: 058
     Dates: start: 20050308
  2. COPEGUS [Suspect]
     Dosage: DOSAGE REGIMEN 3AM 2PM
     Route: 048
     Dates: start: 20050308
  3. PROZAC [Concomitant]
     Route: 048
  4. THYROID DRUG NOS [Concomitant]
     Route: 048

REACTIONS (10)
  - AMMONIA INCREASED [None]
  - ASCITES [None]
  - DEHYDRATION [None]
  - DIZZINESS [None]
  - FATIGUE [None]
  - GENERAL PHYSICAL HEALTH DETERIORATION [None]
  - HEPATIC CIRRHOSIS [None]
  - HEPATIC FAILURE [None]
  - JAUNDICE [None]
  - RENAL FAILURE [None]
